FAERS Safety Report 24380191 (Version 3)
Quarter: 2024Q4

REPORT INFORMATION
  Report Type: Spontaneous
  Country: US (occurrence: US)
  Receive Date: 20240930
  Receipt Date: 20241003
  Transmission Date: 20250114
  Serious: Yes (Other)
  Sender: GLAXOSMITHKLINE
  Company Number: US-GLAXOSMITHKLINE-US2024GSK118508

PATIENT

DRUGS (1)
  1. WELLBUTRIN XL [Suspect]
     Active Substance: BUPROPION HYDROCHLORIDE
     Indication: Depression
     Dosage: 1 DF, QD
     Route: 048
     Dates: start: 20240730, end: 20240813

REACTIONS (4)
  - Generalised tonic-clonic seizure [Recovered/Resolved]
  - Adverse drug reaction [Unknown]
  - Tremor [Unknown]
  - Screaming [Unknown]

NARRATIVE: CASE EVENT DATE: 20240813
